FAERS Safety Report 6814100-X (Version None)
Quarter: 2010Q3

REPORT INFORMATION
  Report Type: 
  Country: None (occurrence: None)
  Receive Date: 20100702
  Receipt Date: 20090928
  Transmission Date: 20110219
  Serious: No
  Sender: FDA-Public Use
  Company Number: A0809584A

PATIENT
  Sex: Female

DRUGS (2)
  1. ADVAIR DISKUS 100/50 [Suspect]
     Route: 055
  2. SEREVENT [Suspect]
     Route: 055

REACTIONS (3)
  - ADVERSE DRUG REACTION [None]
  - ADVERSE EVENT [None]
  - FEELING ABNORMAL [None]
